FAERS Safety Report 16195672 (Version 2)
Quarter: 2019Q2

REPORT INFORMATION
  Report Type: Report from Study
  Country: DK (occurrence: DK)
  Receive Date: 20190415
  Receipt Date: 20190430
  Transmission Date: 20190711
  Serious: Yes (Hospitalization)
  Sender: FDA-Public Use
  Company Number: DK-ROCHE-2302758

PATIENT
  Age: 55 Year
  Sex: Male
  Weight: 90.5 kg

DRUGS (6)
  1. RITUXIMAB. [Suspect]
     Active Substance: RITUXIMAB
     Indication: CHRONIC LYMPHOCYTIC LEUKAEMIA
     Dosage: CYCLE 1: 375 MG/M2, D0; ?CYCLES 2-6: 500 MG/M2, D1; Q28D?THIS WAS ALSO THE MOST RECENT DOSE OF RITUX
     Route: 065
     Dates: start: 20190409
  2. ALLOPURINOL. [Concomitant]
     Active Substance: ALLOPURINOL
     Route: 048
  3. ACYCLOVIR [ACICLOVIR] [Concomitant]
     Active Substance: ACYCLOVIR
     Route: 048
  4. TRIMETHOPRIM SULFA [Concomitant]
     Active Substance: TRIMETHOPRIM SULFATE
     Route: 048
  5. IMOZOP [Concomitant]
     Active Substance: ZOPICLONE
     Route: 048
  6. VENETOCLAX. [Suspect]
     Active Substance: VENETOCLAX
     Indication: CHRONIC LYMPHOCYTIC LEUKAEMIA
     Dosage: CYCLE 1: 20 MG (2 TABL. AT 10 MG), D22-28, Q28D?CYCLE 2: 50 MG (1 TABL. AT 50 MG), D1-7; 100 MG (1 T
     Route: 048
     Dates: start: 20190409

REACTIONS (1)
  - Sinusitis [Recovered/Resolved]

NARRATIVE: CASE EVENT DATE: 20190410
